FAERS Safety Report 6695485-4 (Version None)
Quarter: 2010Q2

REPORT INFORMATION
  Report Type: 
  Country: None (occurrence: None)
  Receive Date: 20100425
  Receipt Date: 20100420
  Transmission Date: 20101027
  Serious: Yes (Other)
  Sender: FDA-Public Use
  Company Number: US-BRISTOL-MYERS SQUIBB COMPANY-15071392

PATIENT
  Age: 30 Year
  Sex: Female

DRUGS (3)
  1. VIDEX [Suspect]
     Indication: HIV INFECTION
     Dosage: INTERRUPTED ON 18MAR2009, RESTART ON 12MAY2009
     Route: 048
  2. VIREAD [Suspect]
     Indication: HIV INFECTION
     Dosage: INTERRUPTED ON 18MAR2009, RESTART ON 12MAY2009
     Route: 048
  3. KALETRA [Suspect]
     Indication: HIV INFECTION

REACTIONS (1)
  - FANCONI SYNDROME [None]
